FAERS Safety Report 7957516-0 (Version None)
Quarter: 2011Q4

REPORT INFORMATION
  Report Type: 
  Country: None (occurrence: None)
  Receive Date: 20111205
  Receipt Date: 20111130
  Transmission Date: 20120403
  Serious: Yes (Other)
  Sender: FDA-Public Use
  Company Number: US-GLAXOSMITHKLINE-A0952019A

PATIENT
  Age: 59 Year
  Sex: Male

DRUGS (3)
  1. AVODART [Suspect]
     Indication: BENIGN PROSTATIC HYPERPLASIA
     Dosage: 1CAP PER DAY
     Route: 048
     Dates: start: 20060101, end: 20111001
  2. PROTON PUMP INHIBITOR [Concomitant]
  3. GLAUCOMA EYE DROPS (UNSPECIFIED) [Concomitant]
     Indication: GLAUCOMA

REACTIONS (2)
  - ANGLE CLOSURE GLAUCOMA [None]
  - GLAUCOMA [None]
